FAERS Safety Report 20725103 (Version 5)
Quarter: 2022Q2

REPORT INFORMATION
  Report Type: Spontaneous
  Country: US (occurrence: US)
  Receive Date: 20220419
  Receipt Date: 20220602
  Transmission Date: 20220721
  Serious: No
  Sender: FDA-Public Use
  Company Number: US-PFIZER INC-202200583961

PATIENT
  Age: 58 Year
  Sex: Female
  Weight: 61.23 kg

DRUGS (1)
  1. PAXLOVID [Suspect]
     Active Substance: NIRMATRELVIR\RITONAVIR
     Indication: COVID-19 treatment
     Dosage: UNK (BLISTER PACK)
     Route: 048
     Dates: start: 20220414

REACTIONS (6)
  - Product taste abnormal [Unknown]
  - Dysgeusia [Unknown]
  - Nausea [Unknown]
  - Salivary hypersecretion [Unknown]
  - Abdominal pain upper [Unknown]
  - Detrusor sphincter dyssynergia [Unknown]

NARRATIVE: CASE EVENT DATE: 20220415
